FAERS Safety Report 7518345-5 (Version None)
Quarter: 2011Q2

REPORT INFORMATION
  Report Type: 
  Country: None (occurrence: None)
  Receive Date: 20110602
  Receipt Date: 20091226
  Transmission Date: 20111010
  Serious: Yes (Other)
  Sender: FDA-Public Use
  Company Number: US-BAYER-200943394NA

PATIENT
  Sex: Female

DRUGS (1)
  1. TRASYLOL [Suspect]
     Indication: CARDIAC OPERATION
     Route: 042
     Dates: start: 19970410

REACTIONS (5)
  - INJURY [None]
  - UNEVALUABLE EVENT [None]
  - RENAL FAILURE [None]
  - RENAL FAILURE ACUTE [None]
  - PAIN [None]
